FAERS Safety Report 17931289 (Version 1)
Quarter: 2020Q2

REPORT INFORMATION
  Report Type: Spontaneous
  Country: FR (occurrence: FR)
  Receive Date: 20200623
  Receipt Date: 20200623
  Transmission Date: 20200714
  Serious: Yes (Hospitalization)
  Sender: FDA-Public Use
  Company Number: NVSC2020FR173313

PATIENT
  Age: 45 Year
  Sex: Female
  Weight: 63 kg

DRUGS (5)
  1. PERINDOPRIL [Suspect]
     Active Substance: PERINDOPRIL
     Indication: TOXICITY TO VARIOUS AGENTS
     Dosage: 472 MG (1, TOTAL)
     Route: 048
     Dates: start: 20200408, end: 20200408
  2. KARDEGIC [Suspect]
     Active Substance: ASPIRIN DL-LYSINE
     Indication: TOXICITY TO VARIOUS AGENTS
     Dosage: UNK (INCONNUE)
     Route: 048
     Dates: start: 20200408, end: 20200408
  3. ROSUVASTATINE SANDOZ 10 MG, FILMOMHULDE TABLETTEN [Suspect]
     Active Substance: ROSUVASTATIN CALCIUM
     Indication: TOXICITY TO VARIOUS AGENTS
     Dosage: 75 MG (1, TOTAL)
     Route: 048
     Dates: start: 20200408, end: 20200408
  4. BISOPROLOL FUMARATE. [Suspect]
     Active Substance: BISOPROLOL FUMARATE
     Indication: TOXICITY TO VARIOUS AGENTS
     Dosage: 410 MG (1, TOTAL)
     Route: 048
     Dates: start: 20200408, end: 20200408
  5. CODOLIPRANE [Suspect]
     Active Substance: ACETAMINOPHEN\CODEINE PHOSPHATE
     Indication: TOXICITY TO VARIOUS AGENTS
     Dosage: 24 DF (1, TOTAL)
     Route: 048
     Dates: start: 20200408, end: 20200408

REACTIONS (3)
  - Metabolic acidosis [Recovered/Resolved]
  - Hypotension [Recovered/Resolved]
  - Vomiting [Recovered/Resolved]

NARRATIVE: CASE EVENT DATE: 20200408
